FAERS Safety Report 9700678 (Version 4)
Quarter: 2013Q4

REPORT INFORMATION
  Report Type: Spontaneous
  Country: BG (occurrence: BG)
  Receive Date: 20131121
  Receipt Date: 20131212
  Transmission Date: 20140711
  Serious: Yes (Death, Other)
  Sender: FDA-Public Use
  Company Number: PHHY2013BG132291

PATIENT
  Age: 38 Year
  Sex: Female
  Weight: 57 kg

DRUGS (1)
  1. EXTAVIA [Suspect]
     Indication: MULTIPLE SCLEROSIS
     Dosage: 300 UG, Q48H
     Route: 058
     Dates: start: 2010

REACTIONS (4)
  - Pulmonary embolism [Fatal]
  - Fall [Unknown]
  - Multiple sclerosis relapse [Unknown]
  - Malaise [Unknown]
